FAERS Safety Report 9718331 (Version 1)
Quarter: 2013Q4

REPORT INFORMATION
  Report Type: Spontaneous
  Country: IN (occurrence: IN)
  Receive Date: 20131127
  Receipt Date: 20131127
  Transmission Date: 20140711
  Serious: Yes (Life-Threatening, Hospitalization, Other)
  Sender: FDA-Public Use
  Company Number: IN-WATSON-2013-21263

PATIENT
  Age: 63 Year
  Sex: Male

DRUGS (4)
  1. CHLOROQUINE (UNKNOWN) [Suspect]
     Indication: LIVER ABSCESS
     Dosage: UNK
     Route: 048
  2. PARACETAMOL [Concomitant]
     Indication: PRODUCT USED FOR UNKNOWN INDICATION
     Dosage: UNK
     Route: 065
  3. PIPERACILLIN/TAZOBACTAM [Concomitant]
     Indication: LIVER ABSCESS
     Dosage: UNK
     Route: 042
  4. METRONIDAZOLE [Concomitant]
     Indication: LIVER ABSCESS
     Dosage: UNK
     Route: 042

REACTIONS (3)
  - Torsade de pointes [Recovered/Resolved]
  - Long QT syndrome [Recovered/Resolved]
  - Tonic convulsion [Recovered/Resolved]
